FAERS Safety Report 17990168 (Version 1)
Quarter: 2020Q3

REPORT INFORMATION
  Report Type: Spontaneous
  Country: SG (occurrence: SG)
  Receive Date: 20200707
  Receipt Date: 20200707
  Transmission Date: 20201103
  Serious: Yes (Other)
  Sender: FDA-Public Use
  Company Number: SG-ABBVIE-20K-141-3470715-00

PATIENT
  Sex: Male

DRUGS (4)
  1. ABACAVIR. [Suspect]
     Active Substance: ABACAVIR
     Indication: HIV INFECTION
     Dosage: 1 DOSAGE FORM 1 TIME DAILY
     Route: 048
  2. LAMIVUDINE. [Suspect]
     Active Substance: LAMIVUDINE
     Indication: HIV INFECTION
     Dosage: 1 DOSAGE FORM 1 TIME DAILY
     Route: 048
  3. NORVIR [Suspect]
     Active Substance: RITONAVIR
     Indication: HIV INFECTION
     Route: 065
  4. ATAZANAVIR. [Suspect]
     Active Substance: ATAZANAVIR
     Indication: HIV INFECTION
     Route: 065

REACTIONS (4)
  - Treatment noncompliance [Unknown]
  - Blood HIV RNA increased [Unknown]
  - Gastrointestinal disorder [Unknown]
  - Virologic failure [Unknown]

NARRATIVE: CASE EVENT DATE: 20110601
